FAERS Safety Report 10562362 (Version 3)
Quarter: 2015Q2

REPORT INFORMATION
  Report Type: Spontaneous
  Country: GB (occurrence: None)
  Receive Date: 20141031
  Receipt Date: 20150508
  Transmission Date: 20150821
  Serious: Yes (Hospitalization, Other)
  Sender: FDA-Public Use
  Company Number: B1031569A

PATIENT
  Age: 67 Year
  Sex: Female
  Weight: 51 kg

DRUGS (1)
  1. MARAVIROC (MARAVIROC) [Suspect]
     Active Substance: MARAVIROC
     Indication: HIV INFECTION
     Route: 048
     Dates: start: 20100317

REACTIONS (4)
  - Myalgia [None]
  - Productive cough [None]
  - Secretion discharge [None]
  - Myocardial infarction [None]

NARRATIVE: CASE EVENT DATE: 20120419
